FAERS Safety Report 5650761-9 (Version None)
Quarter: 2008Q1

REPORT INFORMATION
  Report Type: 
  Country: None (occurrence: None)
  Receive Date: 20080305
  Receipt Date: 20080226
  Transmission Date: 20080703
  Serious: Yes (Other)
  Sender: FDA-Public Use
  Company Number: PHEH2008US01250

PATIENT
  Age: 67 Year
  Sex: Female
  Weight: 78.911 kg

DRUGS (6)
  1. RECLAST [Suspect]
     Indication: OSTEOPOROSIS
     Dosage: 5 MG, ONCE/SINGLE
     Dates: start: 20080111, end: 20080111
  2. DIOVAN HCT [Concomitant]
     Indication: HYPERTENSION
     Dosage: 160/12.5
     Route: 048
     Dates: start: 20000523
  3. PREMARIN [Concomitant]
     Indication: MENOPAUSAL SYMPTOMS
     Dosage: 0.3 MG, QD
     Route: 048
     Dates: start: 20031201
  4. CALAN - SLOW RELEASE [Concomitant]
     Indication: SUPRAVENTRICULAR TACHYCARDIA
     Dosage: 240 UNK, QD
     Route: 048
     Dates: start: 20060801
  5. LIPITOR [Concomitant]
     Indication: HYPERLIPIDAEMIA
     Dosage: 10 MG, QD
     Route: 048
     Dates: start: 20070101
  6. PROTONIX [Concomitant]

REACTIONS (8)
  - ARTHRALGIA [None]
  - CARPAL TUNNEL SYNDROME [None]
  - CHEST PAIN [None]
  - CHILLS [None]
  - MUSCLE SPASMS [None]
  - PAIN IN EXTREMITY [None]
  - TACHYCARDIA [None]
  - TENOSYNOVITIS [None]
